FAERS Safety Report 9641826 (Version 1)
Quarter: 2013Q4

REPORT INFORMATION
  Report Type: Spontaneous
  Country: CN (occurrence: None)
  Receive Date: 20131021
  Receipt Date: 20131021
  Transmission Date: 20140711
  Serious: Yes (Hospitalization)
  Sender: FDA-Public Use
  Company Number: VAL_02775_2013

PATIENT
  Age: 33 Year
  Sex: Male

DRUGS (3)
  1. CALCITRIOL [Suspect]
     Indication: OSTEOPOROSIS
     Dosage: (DF ORAL)
     Route: 048
     Dates: start: 20130516, end: 20130702
  2. METHYLPREDNISOLONE [Suspect]
     Indication: OSTEOPOROSIS
     Dosage: DF (REDUCED)
     Dates: start: 20130516, end: 20130702
  3. RAMIPRIL [Concomitant]

REACTIONS (6)
  - Muscle spasms [None]
  - Pain in extremity [None]
  - Hepatic function abnormal [None]
  - Alanine aminotransferase increased [None]
  - Aspartate aminotransferase increased [None]
  - Blood creatinine abnormal [None]
